FAERS Safety Report 10977544 (Version 1)
Quarter: 2015Q1

REPORT INFORMATION
  Report Type: Spontaneous
  Country: US (occurrence: None)
  Receive Date: 20150226
  Receipt Date: 20150226
  Transmission Date: 20150721
  Serious: No
  Sender: FDA-Public Use
  Company Number: TPA2009A03098

PATIENT
  Age: 7 Decade
  Sex: Male
  Weight: 68.04 kg

DRUGS (2)
  1. TOPROL (METOPROLOL) [Concomitant]
  2. ULORIC [Suspect]
     Active Substance: FEBUXOSTAT
     Indication: GOUT
     Dosage: 40 MG, UNKNOWN
     Dates: start: 2009, end: 2009

REACTIONS (1)
  - Rash [None]

NARRATIVE: CASE EVENT DATE: 2009
